FAERS Safety Report 9849104 (Version 1)
Quarter: 2013Q4

REPORT INFORMATION
  Report Type: Spontaneous
  Country: US (occurrence: None)
  Receive Date: 20131224
  Receipt Date: 20131224
  Transmission Date: 20140711
  Serious: Yes (Hospitalization, Other)
  Sender: FDA-Public Use
  Company Number: PHEH2013US012962

PATIENT
  Age: 58 Year
  Sex: Male
  Weight: 93 kg

DRUGS (15)
  1. MYFORTIC (MYCOPHENOLIC ACID) UNKNOWN [Suspect]
     Indication: IMMUNOSUPPRESSION
     Route: 048
     Dates: start: 20120614
  2. TACROLIMUS (TACROLIMUS) [Suspect]
     Route: 048
     Dates: start: 20120615
  3. THYMOGLOBULIN (ANTITHYMOCYTE IMMUNOGLOBULIN (RABBIT)) [Concomitant]
  4. THYMOGLOBULIN (ANTITHYMOCYTE IMMUNOGLOBULIN (RABBIT)) [Concomitant]
  5. THYMOGLOBULIN (ANTITHYMOCYTE IMMUNOGLOBULIN (RABBIT)) [Suspect]
  6. THYMOGLOBULIN (ANTITHYMOCYTE IMMUNOGLOBULIN (RABBIT)) [Concomitant]
  7. ACETYLSALICYLIC ACID (ACETYLSALICYLIC ACID) [Concomitant]
  8. CELEXA (CITALOPRAM HYDROBROMIDE) [Concomitant]
  9. METOPROLOL TARTRATE [Concomitant]
  10. MULTIVITAMIN [Concomitant]
  11. OMEPRAZOLE (OMEPRAZOLE) [Concomitant]
  12. SIMVASTATIN (SIMVASTATIN) [Concomitant]
  13. TRIMETHOPRIM SULFAMETHOXAZOLE [Concomitant]
  14. TAMSULOSIN (TAMSULOSIN) [Concomitant]
  15. VALGANCICLOVIR [Concomitant]

REACTIONS (9)
  - Bladder transitional cell carcinoma [None]
  - Malaise [None]
  - Urine output decreased [None]
  - Blood creatinine increased [None]
  - Dysuria [None]
  - Decreased appetite [None]
  - Weight decreased [None]
  - Lethargy [None]
  - Asthenia [None]
